FAERS Safety Report 5241886-0 (Version None)
Quarter: 2007Q1

REPORT INFORMATION
  Report Type: 
  Country: None (occurrence: None)
  Receive Date: 20070220
  Receipt Date: 20070207
  Transmission Date: 20070707
  Serious: Yes (Hospitalization)
  Sender: FDA-Public Use
  Company Number: US-ELI_LILLY_AND_COMPANY-US200702001577

PATIENT
  Age: 62 Year
  Sex: Female

DRUGS (3)
  1. PROZAC [Suspect]
     Indication: DEPRESSION
     Dosage: UNK, UNK
     Route: 048
     Dates: start: 19910101
  2. PERCOCET [Concomitant]
  3. NEURONTIN [Concomitant]

REACTIONS (2)
  - BREAST CANCER [None]
  - DEPRESSION [None]
